FAERS Safety Report 9632946 (Version 1)
Quarter: 2013Q4

REPORT INFORMATION
  Report Type: Spontaneous
  Country: GB (occurrence: GB)
  Receive Date: 20131018
  Receipt Date: 20131018
  Transmission Date: 20140711
  Serious: Yes (Other)
  Sender: FDA-Public Use
  Company Number: PHHY2013GB113662

PATIENT
  Sex: Female

DRUGS (1)
  1. CIPROFLOXACIN [Suspect]
     Dates: end: 20130813

REACTIONS (3)
  - Emphysema [Unknown]
  - Condition aggravated [Unknown]
  - Tendonitis [Not Recovered/Not Resolved]
